FAERS Safety Report 6815954-3 (Version None)
Quarter: 2010Q3

REPORT INFORMATION
  Report Type: 
  Country: None (occurrence: None)
  Receive Date: 20100705
  Receipt Date: 20100624
  Transmission Date: 20110219
  Serious: No
  Sender: FDA-Public Use
  Company Number: US-BIOGENIDEC-2010BI021984

PATIENT
  Age: 52 Year
  Sex: Female

DRUGS (2)
  1. TYSABRI [Suspect]
     Indication: MULTIPLE SCLEROSIS
     Route: 042
     Dates: start: 20100406
  2. ASTHMA INHALER [Concomitant]
     Indication: ASTHMA

REACTIONS (6)
  - CHILLS [None]
  - COUGH [None]
  - MICTURITION URGENCY [None]
  - NAUSEA [None]
  - PYREXIA [None]
  - VAGINAL INFECTION [None]
